FAERS Safety Report 12283633 (Version 3)
Quarter: 2017Q1

REPORT INFORMATION
  Report Type: Spontaneous
  Country: GB (occurrence: GB)
  Receive Date: 20160419
  Receipt Date: 20170106
  Transmission Date: 20170428
  Serious: Yes (Hospitalization, Other)
  Sender: FDA-Public Use
  Company Number: GB-TEVA-651697ACC

PATIENT
  Age: 72 Year
  Sex: Female

DRUGS (12)
  1. ASPIRIN. [Concomitant]
     Active Substance: ASPIRIN
  2. ALENDRONIC ACID [Concomitant]
     Active Substance: ALENDRONIC ACID
  3. RAMIPRIL. [Concomitant]
     Active Substance: RAMIPRIL
     Dosage: 10 MILLIGRAM DAILY;
  4. SERETIDE [Concomitant]
     Active Substance: FLUTICASONE PROPIONATE\SALMETEROL XINAFOATE
  5. CLOPIDOGREL [Suspect]
     Active Substance: CLOPIDOGREL BISULFATE
     Indication: THROMBOSIS PROPHYLAXIS
     Dosage: 75 MILLIGRAM DAILY;
     Route: 048
     Dates: start: 201503
  6. CLOPIDOGREL [Interacting]
     Active Substance: CLOPIDOGREL BISULFATE
     Indication: TRANSIENT ISCHAEMIC ATTACK
     Dates: start: 201412
  7. REFRESH CELLUVISC [Concomitant]
     Active Substance: CARBOXYMETHYLCELLULOSE SODIUM
  8. LATANOPROST. [Concomitant]
     Active Substance: LATANOPROST
  9. SPIRIVA [Concomitant]
     Active Substance: TIOTROPIUM BROMIDE MONOHYDRATE
  10. EZETIMIBE. [Concomitant]
     Active Substance: EZETIMIBE
  11. OMEPRAZOLE. [Interacting]
     Active Substance: OMEPRAZOLE
     Route: 048
     Dates: start: 20150301, end: 20160202
  12. LEVOTHYROXINE. [Concomitant]
     Active Substance: LEVOTHYROXINE

REACTIONS (3)
  - Transient ischaemic attack [Recovered/Resolved]
  - Facial paralysis [Recovered/Resolved]
  - Labelled drug-drug interaction medication error [Unknown]

NARRATIVE: CASE EVENT DATE: 20160202
